FAERS Safety Report 6024876-X (Version None)
Quarter: 2008Q4

REPORT INFORMATION
  Report Type: 
  Country: None (occurrence: None)
  Receive Date: 20081231
  Receipt Date: 20081223
  Transmission Date: 20090506
  Serious: Yes (Hospitalization, Other)
  Sender: FDA-Public Use
  Company Number: US-PFIZER INC-2008096346

PATIENT
  Sex: Male
  Weight: 78 kg

DRUGS (3)
  1. SUTENT [Suspect]
     Indication: METASTATIC RENAL CELL CARCINOMA
     Dosage: QD: EVERY DAY
     Route: 048
     Dates: start: 20080518
  2. NORVASC [Suspect]
     Indication: BLOOD PRESSURE
     Dosage: 2.5 MG, UNK
     Dates: start: 20080601
  3. LISINOPRIL [Suspect]

REACTIONS (1)
  - ANGIOEDEMA [None]
